FAERS Safety Report 8016592-X (Version None)
Quarter: 2011Q4

REPORT INFORMATION
  Report Type: 
  Country: None (occurrence: None)
  Receive Date: 20111230
  Receipt Date: 20111221
  Transmission Date: 20120403
  Serious: Yes (Hospitalization)
  Sender: FDA-Public Use
  Company Number: IT-ASTRAZENECA-2011SE77947

PATIENT
  Sex: Female

DRUGS (1)
  1. SEROQUEL XR [Suspect]
     Dosage: PATIENT TOOK 12 G ONCE/SINGLE ADMINISTRATION
     Route: 048

REACTIONS (3)
  - DRUG ABUSE [None]
  - AGITATION [None]
  - CONFUSIONAL STATE [None]
